FAERS Safety Report 20458365 (Version 1)
Quarter: 2022Q1

REPORT INFORMATION
  Report Type: Spontaneous
  Country: IT (occurrence: IT)
  Receive Date: 20220211
  Receipt Date: 20220211
  Transmission Date: 20220424
  Serious: Yes (Other)
  Sender: FDA-Public Use
  Company Number: IT-CELLTRION INC.-2022IT001271

PATIENT

DRUGS (7)
  1. RITUXIMAB [Suspect]
     Active Substance: RITUXIMAB
     Indication: Anti-platelet antibody
     Dosage: 375 MG/M2, WEEKLY
     Route: 065
  2. RITUXIMAB [Suspect]
     Active Substance: RITUXIMAB
     Indication: Anti-complement antibody
  3. ECULIZUMAB [Suspect]
     Active Substance: ECULIZUMAB
     Indication: Atypical haemolytic uraemic syndrome
  4. BUSULFAN [Suspect]
     Active Substance: BUSULFAN
     Indication: Stem cell transplant
     Dosage: 320 MG/M2 (80 MG/M2, QID (4/DAY) (TARGETED AUC 85 MGX H/L))
     Route: 042
  5. BUSULFAN [Suspect]
     Active Substance: BUSULFAN
     Dosage: 375 MG/M2, QD
     Route: 042
  6. DEFITELIO [Suspect]
     Active Substance: DEFIBROTIDE SODIUM
     Indication: Prophylaxis
     Dosage: 25 MG/KG, QD
  7. SOLIRIS [Suspect]
     Active Substance: ECULIZUMAB
     Indication: Atypical haemolytic uraemic syndrome
     Dosage: 300 MG/ WEEKLY DOSE, STARTED ON DAY +40
     Route: 065

REACTIONS (8)
  - Post procedural haemorrhage [Recovered/Resolved]
  - Venoocclusive liver disease [Unknown]
  - Atypical haemolytic uraemic syndrome [Recovered/Resolved]
  - Bone marrow failure [Recovered/Resolved]
  - Pulmonary oedema [Unknown]
  - Off label use [Unknown]
  - Product administration error [Unknown]
  - Off label use [Unknown]
